FAERS Safety Report 13477476 (Version 3)
Quarter: 2017Q2

REPORT INFORMATION
  Report Type: Report from Study
  Country: US (occurrence: US)
  Receive Date: 20170425
  Receipt Date: 20170517
  Transmission Date: 20170830
  Serious: Yes (Death, Hospitalization, Other)
  Sender: FDA-Public Use
  Company Number: US-BAYER-2017-073052

PATIENT
  Age: 77 Year
  Sex: Male

DRUGS (1)
  1. STIVARGA [Suspect]
     Active Substance: REGORAFENIB
     Indication: RECTAL CANCER
     Dosage: 120 MG, QD
     Route: 048
     Dates: start: 20170304, end: 201704

REACTIONS (3)
  - Blood glucose increased [Not Recovered/Not Resolved]
  - Metastases to central nervous system [None]
  - Death [Fatal]

NARRATIVE: CASE EVENT DATE: 20170408
